FAERS Safety Report 14127352 (Version 1)
Quarter: 2017Q4

REPORT INFORMATION
  Report Type: Spontaneous
  Country: US (occurrence: US)
  Receive Date: 20171026
  Receipt Date: 20171026
  Transmission Date: 20180321
  Serious: No
  Sender: FDA-Public Use
  Company Number: US-TEVA-722994ACC

PATIENT
  Sex: Male
  Weight: 90 kg

DRUGS (1)
  1. CARBIDOPA AND LEVODOPA [Suspect]
     Active Substance: CARBIDOPA\LEVODOPA
     Dosage: CARBIDOPA 25MG + LEVODOPA 100MG

REACTIONS (2)
  - Drug effect decreased [Unknown]
  - Drug effect delayed [Unknown]
